FAERS Safety Report 7255257-9 (Version None)
Quarter: 2011Q1

REPORT INFORMATION
  Report Type: 
  Country: None (occurrence: None)
  Receive Date: 20110129
  Receipt Date: 20100302
  Transmission Date: 20110831
  Serious: No
  Sender: FDA-Public Use
  Company Number: US-ABBOTT-10P-163-0630271-00

PATIENT
  Sex: Female
  Weight: 71.732 kg

DRUGS (2)
  1. DECLINED LIST [Concomitant]
     Indication: PRODUCT USED FOR UNKNOWN INDICATION
  2. HUMIRA [Suspect]
     Indication: PSORIATIC ARTHROPATHY
     Route: 058
     Dates: start: 20070101, end: 20091207

REACTIONS (4)
  - PAIN [None]
  - PSORIASIS [None]
  - INSOMNIA [None]
  - JOINT SWELLING [None]
